FAERS Safety Report 17874503 (Version 1)
Quarter: 2020Q2

REPORT INFORMATION
  Report Type: Spontaneous
  Country: RU (occurrence: RU)
  Receive Date: 20200609
  Receipt Date: 20200609
  Transmission Date: 20200714
  Serious: Yes (Hospitalization, Other)
  Sender: FDA-Public Use
  Company Number: RU-PBT-000001

PATIENT
  Age: 9 Year

DRUGS (2)
  1. TACROLIMUS. [Suspect]
     Active Substance: TACROLIMUS
     Indication: PROPHYLAXIS AGAINST GRAFT VERSUS HOST DISEASE
     Route: 065
  2. MYCOPHENOLATE MOFETIL. [Suspect]
     Active Substance: MYCOPHENOLATE MOFETIL
     Indication: PROPHYLAXIS AGAINST GRAFT VERSUS HOST DISEASE
     Route: 065

REACTIONS (7)
  - Thrombotic microangiopathy [Unknown]
  - Cytomegalovirus infection [Recovered/Resolved]
  - Chronic kidney disease [Unknown]
  - Drug effective for unapproved indication [Unknown]
  - Hypertension [Unknown]
  - Blood creatinine increased [Recovered/Resolved]
  - Nervous system disorder [Recovered/Resolved]
